FAERS Safety Report 13396064 (Version 1)
Quarter: 2017Q2

REPORT INFORMATION
  Report Type: Spontaneous
  Country: US (occurrence: US)
  Receive Date: 20170403
  Receipt Date: 20170403
  Transmission Date: 20170830
  Serious: No
  Sender: FDA-Public Use
  Company Number: US-BAYER-2017-062858

PATIENT
  Age: 87 Year
  Sex: Female
  Weight: 54 kg

DRUGS (9)
  1. PRESERVISION EYE VITAMIN AND MINERAL SUPPL. [Concomitant]
  2. METOPROLOL. [Concomitant]
     Active Substance: METOPROLOL
     Dosage: 25 MG, BID
  3. BAYER LOW DOSE [Concomitant]
     Active Substance: ASPIRIN
     Indication: ISCHAEMIC HEART DISEASE PROPHYLAXIS
  4. FLECAINIDE [Concomitant]
     Active Substance: FLECAINIDE
     Dosage: 50 MG, BID
  5. VITAMIN C [ASCORBIC ACID] [Concomitant]
  6. MULTIVITAMIN AND MINERAL [Concomitant]
     Indication: MACULAR DEGENERATION
  7. BAYER LOW DOSE [Concomitant]
     Active Substance: ASPIRIN
     Indication: PROPHYLAXIS
     Dosage: 1 DF, QD
     Route: 048
  8. TELMISARTAN. [Concomitant]
     Active Substance: TELMISARTAN
     Dosage: 80 MG, QD
  9. MIRALAX [Suspect]
     Active Substance: POLYETHYLENE GLYCOL 3350
     Indication: GASTROINTESTINAL DISORDER
     Dosage: LESS THAN ONE DOSE AS NEEDED DOSE
     Route: 048

REACTIONS (2)
  - Thirst [Recovered/Resolved]
  - Product use issue [Unknown]
